FAERS Safety Report 10837479 (Version 1)
Quarter: 2015Q1

REPORT INFORMATION
  Report Type: Report from Study
  Country: US (occurrence: US)
  Receive Date: 20150219
  Receipt Date: 20150219
  Transmission Date: 20150721
  Serious: No
  Sender: FDA-Public Use
  Company Number: US-ABBVIE-14P-163-1219367-00

PATIENT
  Age: 53 Year
  Sex: Female
  Weight: 85.35 kg

DRUGS (11)
  1. DULOXETINE [Suspect]
     Active Substance: DULOXETINE
     Dates: start: 20140310
  2. HUMIRA [Suspect]
     Active Substance: ADALIMUMAB
     Indication: RHEUMATOID ARTHRITIS
     Dates: start: 20131206
  3. DULOXETINE [Suspect]
     Active Substance: DULOXETINE
     Indication: FIBROMYALGIA
     Dates: start: 20140128, end: 20140214
  4. DULOXETINE [Suspect]
     Active Substance: DULOXETINE
     Dates: start: 20140228, end: 20140303
  5. LEUCOVORIN CALCIUM. [Concomitant]
     Active Substance: LEUCOVORIN CALCIUM
     Indication: PRODUCT USED FOR UNKNOWN INDICATION
  6. FOLIC ACID. [Concomitant]
     Active Substance: FOLIC ACID
     Indication: PRODUCT USED FOR UNKNOWN INDICATION
  7. DULOXETINE [Suspect]
     Active Substance: DULOXETINE
     Dates: start: 20140306, end: 20140309
  8. TRAMADOL [Concomitant]
     Active Substance: TRAMADOL
     Indication: PRODUCT USED FOR UNKNOWN INDICATION
  9. LYRICA [Concomitant]
     Active Substance: PREGABALIN
     Indication: FIBROMYALGIA
  10. DULOXETINE [Suspect]
     Active Substance: DULOXETINE
     Dates: start: 20140214, end: 20140228
  11. METHOTREXATE [Concomitant]
     Active Substance: METHOTREXATE
     Indication: PRODUCT USED FOR UNKNOWN INDICATION

REACTIONS (7)
  - Autophobia [Recovered/Resolved]
  - Palpitations [Recovered/Resolved]
  - Nightmare [Recovered/Resolved]
  - Malaise [Recovered/Resolved]
  - Negative thoughts [Recovered/Resolved]
  - Dry eye [Recovered/Resolved]
  - Fatigue [Not Recovered/Not Resolved]

NARRATIVE: CASE EVENT DATE: 20131206
